FAERS Safety Report 9036281 (Version 1)
Quarter: 2013Q1

REPORT INFORMATION
  Report Type: Spontaneous
  Country: US (occurrence: None)
  Receive Date: 20130117
  Receipt Date: 20130117
  Transmission Date: 20140127
  Serious: Yes (Other)
  Sender: FDA-Public Use
  Company Number: None

PATIENT
  Age: 34 Year
  Sex: Female
  Weight: 61.24 kg

DRUGS (1)
  1. KEPPRA XR [Suspect]
     Indication: EPILEPSY
     Dosage: 750 MG 1 BID, PO
     Route: 048
     Dates: start: 20121206

REACTIONS (2)
  - Product substitution issue [None]
  - Drug intolerance [None]
